FAERS Safety Report 9288302 (Version 1)
Quarter: 2013Q2

REPORT INFORMATION
  Report Type: Spontaneous
  Country: IL (occurrence: IL)
  Receive Date: 20130514
  Receipt Date: 20130514
  Transmission Date: 20140414
  Serious: No
  Sender: FDA-Public Use
  Company Number: IL-JNJFOC-20130505512

PATIENT
  Age: 10 Year
  Sex: Male

DRUGS (1)
  1. FENTANYL [Suspect]
     Indication: ABDOMINAL PAIN UPPER
     Route: 062

REACTIONS (1)
  - Drug ineffective [Unknown]
